FAERS Safety Report 7505255-2 (Version None)
Quarter: 2011Q2

REPORT INFORMATION
  Report Type: 
  Country: None (occurrence: None)
  Receive Date: 20110526
  Receipt Date: 20110513
  Transmission Date: 20111010
  Serious: Yes (Other)
  Sender: FDA-Public Use
  Company Number: CH-JNJFOC-20110510580

PATIENT
  Age: 67 Year
  Sex: Male

DRUGS (1)
  1. HALOPERIDOL [Suspect]
     Indication: ANAESTHETIC COMPLICATION NEUROLOGICAL
     Route: 042

REACTIONS (3)
  - PULMONARY OEDEMA [None]
  - TACHYCARDIA [None]
  - INCORRECT ROUTE OF DRUG ADMINISTRATION [None]
